FAERS Safety Report 9503903 (Version 1)
Quarter: 2013Q3

REPORT INFORMATION
  Report Type: Spontaneous
  Country: US (occurrence: None)
  Receive Date: 20130905
  Receipt Date: 20130905
  Transmission Date: 20140515
  Serious: Yes (Other)
  Sender: FDA-Public Use
  Company Number: None

PATIENT
  Age: 78 Year
  Sex: Male
  Weight: 73.48 kg

DRUGS (1)
  1. MYRBETRIQ [Suspect]
     Indication: HYPERTONIC BLADDER
     Dosage: ONE PILL  ONCE DAILY  TAKEN BY MOUTH
     Route: 048
     Dates: start: 20130816, end: 20130831

REACTIONS (3)
  - Heart rate irregular [None]
  - Extrasystoles [None]
  - Blood pressure immeasurable [None]
